FAERS Safety Report 7523628-9 (Version None)
Quarter: 2011Q2

REPORT INFORMATION
  Report Type: 
  Country: None (occurrence: None)
  Receive Date: 20110603
  Receipt Date: 20110526
  Transmission Date: 20111010
  Serious: Yes (Disabling)
  Sender: FDA-Public Use
  Company Number: GB-TEVA-283717ISR

PATIENT
  Age: 76 Year
  Sex: Male
  Weight: 85.73 kg

DRUGS (1)
  1. BICALUTAMIDE [Suspect]
     Route: 048
     Dates: start: 20110104, end: 20110301

REACTIONS (4)
  - JOINT SWELLING [None]
  - EYE PRURITUS [None]
  - PENILE OEDEMA [None]
  - EYE PAIN [None]
